FAERS Safety Report 25995723 (Version 1)
Quarter: 2025Q4

REPORT INFORMATION
  Report Type: Spontaneous
  Country: US (occurrence: None)
  Receive Date: 20251103
  Receipt Date: 20251103
  Transmission Date: 20260117
  Serious: No
  Sender: FDA-CTU
  Company Number: None

PATIENT
  Age: 68 Year
  Sex: Female

DRUGS (2)
  1. AMBRISENTAN [Suspect]
     Active Substance: AMBRISENTAN
     Indication: Pulmonary hypertension
     Dosage: 5MG QD ORAL?
     Route: 048
     Dates: start: 20251008
  2. TADALAFIL [Suspect]
     Active Substance: TADALAFIL

REACTIONS (4)
  - Middle insomnia [None]
  - Headache [None]
  - Hot flush [None]
  - Dry mouth [None]

NARRATIVE: CASE EVENT DATE: 20251103
